FAERS Safety Report 7180461-8 (Version None)
Quarter: 2010Q4

REPORT INFORMATION
  Report Type: 
  Country: None (occurrence: None)
  Receive Date: 20101221
  Receipt Date: 20101214
  Transmission Date: 20110411
  Serious: Yes (Hospitalization, Other)
  Sender: FDA-Public Use
  Company Number: BR-ABBOTT-10P-020-0691495-00

PATIENT
  Sex: Female
  Weight: 62 kg

DRUGS (4)
  1. HUMIRA [Suspect]
     Indication: CROHN'S DISEASE
     Dosage: INDUCTION DOSE: 160MG/80MG/ 160 MG LOADING DOSE
     Route: 058
     Dates: start: 20100801, end: 20100801
  2. HUMIRA [Suspect]
     Dosage: 80 MG LOADING DOSE
     Route: 058
  3. HUMIRA [Suspect]
     Route: 058
  4. AMLODIPINE BESYLATE AND BENAZEPRIL HCL [Concomitant]
     Indication: BLOOD PRESSURE MANAGEMENT
     Dosage: 0.5MG/10MG EVERY 24 HOURS
     Route: 048
     Dates: start: 20030101

REACTIONS (4)
  - ARTHRALGIA [None]
  - BURNING SENSATION [None]
  - PAIN IN EXTREMITY [None]
  - SMALL INTESTINAL STENOSIS [None]
